FAERS Safety Report 7880596-8 (Version None)
Quarter: 2011Q4

REPORT INFORMATION
  Report Type: 
  Country: None (occurrence: None)
  Receive Date: 20111101
  Receipt Date: 20100708
  Transmission Date: 20120403
  Serious: No
  Sender: FDA-Public Use
  Company Number: US-BAYER-201028034NA

PATIENT
  Age: 21 Year
  Sex: Male

DRUGS (1)
  1. VARDENAFIL HYDROCHLORIDE (LEVITRA) [Suspect]
     Indication: ERECTILE DYSFUNCTION
     Dosage: 5 MG ONCE (20 MG TABLET CUT IN FOURTHS)
     Route: 048
     Dates: start: 20100707, end: 20100707

REACTIONS (1)
  - HEART RATE INCREASED [None]
